FAERS Safety Report 6273671-5 (Version None)
Quarter: 2009Q3

REPORT INFORMATION
  Report Type: 
  Country: None (occurrence: None)
  Receive Date: 20090720
  Receipt Date: 20090708
  Transmission Date: 20100115
  Serious: Yes (Hospitalization, Other)
  Sender: FDA-Public Use
  Company Number: SE-PFIZER INC-2006150907

PATIENT
  Age: 48 Year

DRUGS (4)
  1. GENOTROPIN [Suspect]
     Indication: HYPOPITUITARISM
     Dosage: 0.5 MG, 1X/DAY
     Route: 058
     Dates: start: 19960403, end: 20070629
  2. HYDROCORTISONE [Concomitant]
     Dosage: 10 MG, 2X/DAY
     Dates: start: 20071205
  3. CORTISONE ACETATE [Concomitant]
     Dosage: 12.5 MG, 2X/DAY
     Dates: start: 20021017, end: 20030508
  4. LEVOTHYROXINE SODIUM [Concomitant]
     Dosage: 50 UG, 1X/DAY
     Dates: start: 20040927

REACTIONS (1)
  - PITUITARY TUMOUR RECURRENT [None]
